FAERS Safety Report 9413813 (Version 2)
Quarter: 2013Q3

REPORT INFORMATION
  Report Type: Spontaneous
  Country: CA (occurrence: CA)
  Receive Date: 20130723
  Receipt Date: 20130829
  Transmission Date: 20140515
  Serious: Yes (Other)
  Sender: FDA-Public Use
  Company Number: CA-ABBOTT-13X-028-1122569-00

PATIENT
  Sex: Female
  Weight: 71 kg

DRUGS (2)
  1. SYNTHROID [Suspect]
     Indication: HYPOTHYROIDISM
     Route: 048
  2. SYNTHROID [Suspect]
     Route: 048
     Dates: end: 201209

REACTIONS (4)
  - Mood swings [Unknown]
  - Constipation [Unknown]
  - Malaise [Unknown]
  - Weight increased [Unknown]
